FAERS Safety Report 12282121 (Version 2)
Quarter: 2017Q2

REPORT INFORMATION
  Report Type: Spontaneous
  Country: ES (occurrence: ES)
  Receive Date: 20160419
  Receipt Date: 20170516
  Transmission Date: 20170830
  Serious: Yes (Hospitalization, Other)
  Sender: FDA-Public Use
  Company Number: ES-GILEAD-2016-0208336

PATIENT
  Sex: Female

DRUGS (1)
  1. ZYDELIG [Suspect]
     Active Substance: IDELALISIB
     Indication: B-CELL LYMPHOMA
     Dosage: UNK
     Route: 065
     Dates: start: 201602

REACTIONS (4)
  - Pneumonitis [Unknown]
  - Herpes ophthalmic [Unknown]
  - Blindness unilateral [Not Recovered/Not Resolved]
  - Herpes zoster disseminated [Unknown]
